FAERS Safety Report 9341723 (Version 2)
Quarter: 2013Q3

REPORT INFORMATION
  Report Type: Spontaneous
  Country: US (occurrence: US)
  Receive Date: 20130611
  Receipt Date: 20130905
  Transmission Date: 20140515
  Serious: Yes (Hospitalization)
  Sender: FDA-Public Use
  Company Number: US-BAYER-2013-071468

PATIENT
  Age: 31 Year
  Sex: Female

DRUGS (17)
  1. YAZ [Suspect]
     Indication: MENSTRUAL CYCLE MANAGEMENT
  2. YAZ [Suspect]
     Indication: DYSMENORRHOEA
  3. AMBIEN [Concomitant]
     Dosage: 10 MG, UNK
     Dates: start: 20070301
  4. DOXYCYCLINE [Concomitant]
     Dosage: 100 MG, ONE TWICE EACH DAY FOR 14 DAYS
     Route: 048
     Dates: start: 20070301
  5. EFFEXOR [Concomitant]
     Dosage: 150 MG, UNK
     Dates: start: 20070301
  6. FLUCONAZOLE [Concomitant]
     Dosage: 150 MG, ONE NOW AND ONE IN THREE DAYS
     Route: 048
     Dates: start: 20070301
  7. CYMBALTA [Concomitant]
     Dosage: 30 MG, UNK
     Dates: start: 20070313
  8. CLONAZEPAM [Concomitant]
     Dosage: 0.5 MG, UNK
  9. DIFLUCAN [Concomitant]
  10. XANAX [Concomitant]
     Dosage: 0.5 MG, HS
  11. VICODIN [Concomitant]
  12. MORPHINE [Concomitant]
  13. OXYGEN [Concomitant]
  14. NORMAL SALINE [Concomitant]
  15. ZOFRAN [Concomitant]
  16. LEVAQUIN [Concomitant]
  17. MOTRIN [Concomitant]

REACTIONS (1)
  - Pulmonary embolism [None]
